FAERS Safety Report 18822978 (Version 1)
Quarter: 2021Q1

REPORT INFORMATION
  Report Type: Spontaneous
  Country: IL (occurrence: IL)
  Receive Date: 20210202
  Receipt Date: 20210202
  Transmission Date: 20210419
  Serious: No
  Sender: FDA-Public Use
  Company Number: IL-LUPIN PHARMACEUTICALS INC.-2021-01004

PATIENT
  Age: 5 Year
  Sex: Female

DRUGS (5)
  1. SIROLIMUS. [Suspect]
     Active Substance: SIROLIMUS
     Indication: FIBRODYSPLASIA OSSIFICANS PROGRESSIVA
     Dosage: UNK
     Route: 065
  2. PAMIDRONATE [Suspect]
     Active Substance: PAMIDRONATE DISODIUM
     Indication: FIBRODYSPLASIA OSSIFICANS PROGRESSIVA
     Dosage: UNK?INFUSION
     Route: 042
  3. CANAKINUMAB. [Suspect]
     Active Substance: CANAKINUMAB
     Indication: FIBRODYSPLASIA OSSIFICANS PROGRESSIVA
     Dosage: UNK
     Route: 065
  4. CELECOXIB. [Suspect]
     Active Substance: CELECOXIB
     Indication: FIBRODYSPLASIA OSSIFICANS PROGRESSIVA
     Dosage: UNK
     Route: 065
  5. MONTELUKAST [Suspect]
     Active Substance: MONTELUKAST SODIUM
     Indication: FIBRODYSPLASIA OSSIFICANS PROGRESSIVA
     Dosage: UNK
     Route: 065

REACTIONS (1)
  - Off label use [Unknown]
